FAERS Safety Report 23559423 (Version 2)
Quarter: 2024Q2

REPORT INFORMATION
  Report Type: Spontaneous
  Country: US (occurrence: US)
  Receive Date: 20240223
  Receipt Date: 20240603
  Transmission Date: 20240716
  Serious: Yes (Hospitalization)
  Sender: FDA-Public Use
  Company Number: US-JNJFOC-20240237595

PATIENT
  Age: 56 Year
  Sex: Male

DRUGS (3)
  1. TECLISTAMAB [Suspect]
     Active Substance: TECLISTAMAB
     Indication: Plasma cell myeloma
     Dosage: 1ST STEP-UP DOSE
     Route: 058
     Dates: start: 20240208
  2. TECLISTAMAB [Suspect]
     Active Substance: TECLISTAMAB
     Route: 058
     Dates: start: 20240211
  3. TECLISTAMAB [Suspect]
     Active Substance: TECLISTAMAB
     Route: 058
     Dates: end: 20240211

REACTIONS (1)
  - Cytokine release syndrome [Not Recovered/Not Resolved]

NARRATIVE: CASE EVENT DATE: 20240208
